FAERS Safety Report 23548844 (Version 4)
Quarter: 2024Q4

REPORT INFORMATION
  Report Type: Spontaneous
  Country: CA (occurrence: CA)
  Receive Date: 20240221
  Receipt Date: 20241014
  Transmission Date: 20250115
  Serious: Yes (Hospitalization, Other)
  Sender: TAKEDA
  Company Number: CA-TAKEDA-2024TUS014837

PATIENT
  Sex: Female

DRUGS (115)
  1. HUMAN IMMUNOGLOBULIN G [Suspect]
     Active Substance: HUMAN IMMUNOGLOBULIN G
     Indication: Product used for unknown indication
     Dosage: 70 MILLIGRAM
     Route: 065
  2. METHOTREXATE [Suspect]
     Active Substance: METHOTREXATE
     Indication: Rheumatoid arthritis
     Dosage: 25 MILLIGRAM
     Route: 058
  3. METHOTREXATE [Suspect]
     Active Substance: METHOTREXATE
     Dosage: UNK
     Route: 058
  4. METHOTREXATE [Suspect]
     Active Substance: METHOTREXATE
     Dosage: 25 MILLIGRAM
     Route: 048
  5. METHOTREXATE [Suspect]
     Active Substance: METHOTREXATE
     Dosage: 20 MILLIGRAM
     Route: 065
  6. METHOTREXATE [Suspect]
     Active Substance: METHOTREXATE
     Dosage: 20 MILLIGRAM
     Route: 058
  7. METHOTREXATE [Suspect]
     Active Substance: METHOTREXATE
     Dosage: 20 MILLIGRAM
     Route: 048
  8. METHOTREXATE [Suspect]
     Active Substance: METHOTREXATE
     Dosage: 50 MILLIGRAM
     Route: 065
  9. RITUXIMAB [Suspect]
     Active Substance: RITUXIMAB
     Indication: Rheumatoid arthritis
     Dosage: 1000 MILLIGRAM, QD
     Route: 042
  10. RITUXIMAB [Suspect]
     Active Substance: RITUXIMAB
     Dosage: 1 MILLIGRAM
     Route: 065
  11. RITUXIMAB [Suspect]
     Active Substance: RITUXIMAB
     Dosage: 1 MILLIGRAM, QD
     Route: 065
  12. RISEDRONATE SODIUM [Suspect]
     Active Substance: RISEDRONATE SODIUM
     Indication: Product used for unknown indication
     Dosage: 35 MILLIGRAM, 1/WEEK
     Route: 065
  13. RISEDRONATE SODIUM [Suspect]
     Active Substance: RISEDRONATE SODIUM
     Indication: Product used for unknown indication
     Dosage: 35 MILLIGRAM, 1/WEEK
     Route: 065
  14. ACTEMRA [Suspect]
     Active Substance: TOCILIZUMAB
     Indication: Rheumatoid arthritis
     Dosage: 8 MILLIGRAM/KILOGRAM
     Route: 065
  15. ACTEMRA [Suspect]
     Active Substance: TOCILIZUMAB
     Indication: Rheumatoid arthritis
     Dosage: 8 MILLIGRAM/KILOGRAM
     Route: 065
  16. ACTEMRA [Suspect]
     Active Substance: TOCILIZUMAB
     Dosage: 200 MILLIGRAM/KILOGRAM
     Route: 065
  17. ACTEMRA [Suspect]
     Active Substance: TOCILIZUMAB
     Dosage: 280 MILLIGRAM
     Route: 065
  18. ADALIMUMAB [Suspect]
     Active Substance: ADALIMUMAB
     Indication: Rheumatoid arthritis
     Dosage: 40 MILLIGRAM
     Route: 065
  19. ALENDRONATE SODIUM [Suspect]
     Active Substance: ALENDRONATE SODIUM
     Indication: Rheumatoid arthritis
     Dosage: UNK
     Route: 065
  20. ANAKINRA [Suspect]
     Active Substance: ANAKINRA
     Indication: Rheumatoid arthritis
     Dosage: 100 MILLIGRAM
     Route: 065
  21. ANAKINRA [Suspect]
     Active Substance: ANAKINRA
     Dosage: 50 MILLIGRAM, QD
     Route: 065
  22. LEFLUNOMIDE [Suspect]
     Active Substance: LEFLUNOMIDE
     Indication: Rheumatoid arthritis
     Dosage: 20 MILLIGRAM
     Route: 065
  23. LEFLUNOMIDE [Suspect]
     Active Substance: LEFLUNOMIDE
     Dosage: 20 MILLIGRAM, QD
     Route: 065
  24. LEFLUNOMIDE [Suspect]
     Active Substance: LEFLUNOMIDE
     Dosage: 5 MILLIGRAM, BID
     Route: 048
  25. ARAVA [Suspect]
     Active Substance: LEFLUNOMIDE
     Indication: Rheumatoid arthritis
     Dosage: 20 MILLIGRAM, QD
     Route: 065
  26. CELECOXIB [Suspect]
     Active Substance: CELECOXIB
     Indication: Rheumatoid arthritis
     Dosage: 200 MILLIGRAM
     Route: 048
  27. CETIRIZINE HYDROCHLORIDE [Suspect]
     Active Substance: CETIRIZINE HYDROCHLORIDE
     Indication: Rheumatoid arthritis
     Dosage: UNK
     Route: 042
  28. CIMZIA [Suspect]
     Active Substance: CERTOLIZUMAB PEGOL
     Indication: Rheumatoid arthritis
     Dosage: UNK
     Route: 058
  29. CORTISONE ACETATE [Suspect]
     Active Substance: CORTISONE ACETATE
     Indication: Rheumatoid arthritis
     Dosage: UNK
     Route: 061
  30. COSENTYX [Suspect]
     Active Substance: SECUKINUMAB
     Indication: Psoriatic arthropathy
     Dosage: UNK
     Route: 065
  31. DESOXIMETASONE [Suspect]
     Active Substance: DESOXIMETASONE
     Indication: Rheumatoid arthritis
     Dosage: UNK
     Route: 048
  32. DICLOFENAC SODIUM [Suspect]
     Active Substance: DICLOFENAC SODIUM
     Indication: Product used for unknown indication
     Dosage: UNK
     Route: 065
  33. ERELZI [Suspect]
     Active Substance: ETANERCEPT-SZZS
     Indication: Rheumatoid arthritis
     Dosage: 25 MILLIGRAM, 1/WEEK
     Route: 065
  34. ERELZI [Suspect]
     Active Substance: ETANERCEPT-SZZS
     Dosage: 25 MILLIGRAM
     Route: 065
  35. ERELZI [Suspect]
     Active Substance: ETANERCEPT-SZZS
     Dosage: 12.5 MILLIGRAM, 1/WEEK
     Route: 065
  36. ERELZI [Suspect]
     Active Substance: ETANERCEPT-SZZS
     Dosage: 50 MILLIGRAM, 1/WEEK
     Route: 065
  37. ENBREL [Suspect]
     Active Substance: ETANERCEPT
     Indication: Rheumatoid arthritis
     Dosage: 50 MILLIGRAM
     Route: 065
  38. ETANERCEPT [Suspect]
     Active Substance: ETANERCEPT
     Indication: Rheumatoid arthritis
     Dosage: 50 MILLIGRAM, 3/WEEK
     Route: 058
  39. ETANERCEPT [Suspect]
     Active Substance: ETANERCEPT
     Dosage: 50 MILLIGRAM
     Route: 058
  40. ETANERCEPT [Suspect]
     Active Substance: ETANERCEPT
     Dosage: 50 MILLIGRAM, 3/WEEK
     Route: 058
  41. FOLIC ACID [Suspect]
     Active Substance: FOLIC ACID
     Indication: Rheumatoid arthritis
     Dosage: 5 MILLIGRAM
     Route: 065
  42. FOLIC ACID [Suspect]
     Active Substance: FOLIC ACID
     Dosage: 500 MILLIGRAM
     Route: 065
  43. FOLIC ACID [Suspect]
     Active Substance: FOLIC ACID
     Dosage: 5 MILLIGRAM
     Route: 065
  44. HUMIRA [Suspect]
     Active Substance: ADALIMUMAB
     Indication: Rheumatoid arthritis
     Dosage: 40 MILLIGRAM
     Route: 065
  45. HYDROXYCHLOROQUINE [Suspect]
     Active Substance: HYDROXYCHLOROQUINE
     Indication: Rheumatoid arthritis
     Dosage: 20 MILLIGRAM
     Route: 048
  46. HYDROXYCHLOROQUINE [Suspect]
     Active Substance: HYDROXYCHLOROQUINE
     Dosage: 300 MILLIGRAM, QD
     Route: 048
  47. HYDROXYCHLOROQUINE [Suspect]
     Active Substance: HYDROXYCHLOROQUINE
     Dosage: 400 MILLIGRAM, QID
     Route: 048
  48. HYDROXYCHLOROQUINE [Suspect]
     Active Substance: HYDROXYCHLOROQUINE
     Dosage: 5 MILLIGRAM
     Route: 048
  49. INFLIXIMAB [Suspect]
     Active Substance: INFLIXIMAB
     Indication: Product used for unknown indication
     Dosage: 5 MILLIGRAM/KILOGRAM
     Route: 065
  50. INFLIXIMAB [Suspect]
     Active Substance: INFLIXIMAB
     Dosage: 3 MILLIGRAM/KILOGRAM
     Route: 065
  51. INFLIXIMAB [Suspect]
     Active Substance: INFLIXIMAB
     Dosage: 5 MILLIGRAM/KILOGRAM
     Route: 065
  52. LEFLUNOMIDE [Suspect]
     Active Substance: LEFLUNOMIDE
     Indication: Rheumatoid arthritis
     Dosage: 20 MILLIGRAM, QD
     Route: 065
  53. LEFLUNOMIDE [Suspect]
     Active Substance: LEFLUNOMIDE
     Dosage: 20 MILLIGRAM
     Route: 065
  54. LEFLUNOMIDE [Suspect]
     Active Substance: LEFLUNOMIDE
     Dosage: 20 MILLIGRAM, QD
     Route: 065
  55. LEVOCETIRIZINE HYDROCHLORIDE [Suspect]
     Active Substance: LEVOCETIRIZINE HYDROCHLORIDE
     Indication: Rheumatoid arthritis
     Dosage: UNK
     Route: 065
  56. NAPROXEN [Suspect]
     Active Substance: NAPROXEN
     Indication: Rheumatoid arthritis
     Dosage: UNK
     Route: 065
  57. NAPROXEN SODIUM [Suspect]
     Active Substance: NAPROXEN SODIUM
     Indication: Rheumatoid arthritis
     Dosage: 50 MILLIGRAM
     Route: 065
  58. NAPROXEN SODIUM [Suspect]
     Active Substance: NAPROXEN SODIUM
     Dosage: 500 MILLIGRAM
     Route: 065
  59. NAPROXEN SODIUM [Suspect]
     Active Substance: NAPROXEN SODIUM
     Dosage: 500 MILLIGRAM, BID
     Route: 065
  60. NAPROXEN SODIUM [Suspect]
     Active Substance: NAPROXEN SODIUM
     Dosage: 50 MILLIGRAM
     Route: 065
  61. ORENCIA [Suspect]
     Active Substance: ABATACEPT
     Indication: Rheumatoid arthritis
     Dosage: 150 MILLIGRAM, 3/WEEK
     Route: 058
  62. ORENCIA [Suspect]
     Active Substance: ABATACEPT
     Dosage: 150 MILLIGRAM, 3/WEEK
     Route: 058
  63. ORENCIA [Suspect]
     Active Substance: ABATACEPT
     Dosage: 250 GRAM
     Route: 065
  64. ORENCIA [Suspect]
     Active Substance: ABATACEPT
     Dosage: 150 GRAM
     Route: 065
  65. ORENCIA [Suspect]
     Active Substance: ABATACEPT
     Dosage: 750 GRAM
     Route: 065
  66. PHTHALYLSULFATHIAZOLE [Suspect]
     Active Substance: PHTHALYLSULFATHIAZOLE
     Indication: Rheumatoid arthritis
     Dosage: UNK
     Route: 065
  67. PREDNISONE [Suspect]
     Active Substance: PREDNISONE
     Indication: Rheumatoid arthritis
     Dosage: 1.3 MILLILITER
     Route: 065
  68. PREDNISONE [Suspect]
     Active Substance: PREDNISONE
     Dosage: 5 MILLIGRAM
     Route: 048
  69. PREDNISONE [Suspect]
     Active Substance: PREDNISONE
     Dosage: 5 MILLIGRAM, BID
     Route: 065
  70. PREDNISONE [Suspect]
     Active Substance: PREDNISONE
     Dosage: 3 MILLIGRAM, BID
     Route: 065
  71. PREDNISONE [Suspect]
     Active Substance: PREDNISONE
     Dosage: 5 MILLIGRAM
     Route: 065
  72. PREDNISONE [Suspect]
     Active Substance: PREDNISONE
     Dosage: 5 MILLIGRAM
     Route: 042
  73. PREDNISONE [Suspect]
     Active Substance: PREDNISONE
     Dosage: 5 MILLIGRAM, BID
     Route: 065
  74. PSEUDOEPHEDRINE [Suspect]
     Active Substance: PSEUDOEPHEDRINE
     Indication: Product used for unknown indication
     Dosage: UNK
     Route: 065
  75. REMICADE [Suspect]
     Active Substance: INFLIXIMAB
     Indication: Rheumatoid arthritis
     Dosage: 5 MILLIGRAM/KILOGRAM
     Route: 042
  76. REMICADE [Suspect]
     Active Substance: INFLIXIMAB
     Dosage: 35 MILLIGRAM
     Route: 042
  77. REMICADE [Suspect]
     Active Substance: INFLIXIMAB
     Dosage: 30 MILLIGRAM
     Route: 042
  78. REMICADE [Suspect]
     Active Substance: INFLIXIMAB
     Dosage: 5 MILLIGRAM, BID
     Route: 065
  79. RISEDRONIC ACID [Suspect]
     Active Substance: RISEDRONIC ACID
     Indication: Product used for unknown indication
     Dosage: UNK
     Route: 065
  80. SIMPONI [Suspect]
     Active Substance: GOLIMUMAB
     Indication: Rheumatoid arthritis
     Dosage: 50 MILLIGRAM
     Route: 058
  81. SIMPONI [Suspect]
     Active Substance: GOLIMUMAB
     Dosage: 50 MILLIGRAM, 1/WEEK
     Route: 058
  82. SULFASALAZINE [Suspect]
     Active Substance: SULFASALAZINE
     Indication: Rheumatoid arthritis
     Dosage: 500 MILLIGRAM, QD
     Route: 065
  83. SULFASALAZINE [Suspect]
     Active Substance: SULFASALAZINE
     Dosage: 500 MILLIGRAM, 1/WEEK
     Route: 065
  84. SULFASALAZINE [Suspect]
     Active Substance: SULFASALAZINE
     Dosage: 250 MILLIGRAM, 1/WEEK
     Route: 065
  85. SULFASALAZINE [Suspect]
     Active Substance: SULFASALAZINE
     Dosage: 250 MILLIGRAM, QD
     Route: 065
  86. SULFASALAZINE [Suspect]
     Active Substance: SULFASALAZINE
     Dosage: 500 MILLIGRAM, QD
     Route: 065
  87. TOCILIZUMAB [Suspect]
     Active Substance: TOCILIZUMAB
     Indication: Rheumatoid arthritis
     Dosage: 180 MILLIGRAM
     Route: 065
  88. TOCILIZUMAB [Suspect]
     Active Substance: TOCILIZUMAB
     Indication: Rheumatoid arthritis
     Dosage: 8 MILLIGRAM
     Route: 065
  89. TOCILIZUMAB [Suspect]
     Active Substance: TOCILIZUMAB
     Dosage: 8 MILLIGRAM/KILOGRAM
     Route: 065
  90. TOCILIZUMAB [Suspect]
     Active Substance: TOCILIZUMAB
     Dosage: 8 MILLIGRAM
     Route: 065
  91. TRIAMCINOLONE [Suspect]
     Active Substance: TRIAMCINOLONE
     Indication: Product used for unknown indication
     Dosage: UNK
     Route: 065
  92. TRIAMCINOLONE ACETONIDE [Suspect]
     Active Substance: TRIAMCINOLONE ACETONIDE
     Indication: Product used for unknown indication
     Dosage: UNK
     Route: 065
  93. XELJANZ [Suspect]
     Active Substance: TOFACITINIB CITRATE
     Indication: Rheumatoid arthritis
     Dosage: 5 MILLIGRAM, BID
     Route: 048
  94. XELJANZ [Suspect]
     Active Substance: TOFACITINIB CITRATE
     Dosage: UNK
  95. XELJANZ [Suspect]
     Active Substance: TOFACITINIB CITRATE
     Dosage: 5 MILLIGRAM, QD
     Route: 048
  96. PREDNISONE [Suspect]
     Active Substance: PREDNISONE
     Indication: Rheumatoid arthritis
     Dosage: 20 MILLIGRAM
     Route: 065
  97. PREDNISONE [Suspect]
     Active Substance: PREDNISONE
     Dosage: 20 MILLIGRAM, QD
     Route: 065
  98. PREDNISONE [Suspect]
     Active Substance: PREDNISONE
     Dosage: 5 MILLIGRAM, BID
     Route: 048
  99. PREDNISONE [Suspect]
     Active Substance: PREDNISONE
     Dosage: 3 MILLIGRAM, BID
     Route: 065
  100. PREDNISONE [Suspect]
     Active Substance: PREDNISONE
     Dosage: 5 MILLIGRAM
     Route: 048
  101. PREDNISONE [Suspect]
     Active Substance: PREDNISONE
     Dosage: 5 MILLIGRAM, BID
     Route: 065
  102. CETIRIZINE [Suspect]
     Active Substance: CETIRIZINE HYDROCHLORIDE
     Indication: Rheumatoid arthritis
     Dosage: UNK
     Route: 065
  103. TRIAMCINOLONE [Suspect]
     Active Substance: TRIAMCINOLONE
     Indication: Product used for unknown indication
     Dosage: UNK
     Route: 065
  104. REMICADE [Suspect]
     Active Substance: INFLIXIMAB
     Indication: Rheumatoid arthritis
     Dosage: 5 MILLIGRAM/KILOGRAM
     Route: 065
  105. REMICADE [Suspect]
     Active Substance: INFLIXIMAB
     Dosage: 30 MILLIGRAM
     Route: 042
  106. REMICADE [Suspect]
     Active Substance: INFLIXIMAB
     Dosage: 3 MILLIGRAM/KILOGRAM
     Route: 065
  107. REMICADE [Suspect]
     Active Substance: INFLIXIMAB
     Dosage: 35 MILLIGRAM
     Route: 042
  108. CALCIUM GLUCONATE [Concomitant]
     Active Substance: CALCIUM GLUCONATE
     Indication: Product used for unknown indication
     Dosage: UNK
     Route: 065
  109. PANTOPRAZOLE [Concomitant]
     Active Substance: PANTOPRAZOLE
     Indication: Product used for unknown indication
     Dosage: UNK
     Route: 065
  110. QUETIAPINE [Concomitant]
     Active Substance: QUETIAPINE
     Indication: Product used for unknown indication
     Dosage: UNK
     Route: 065
  111. RAMIPRIL [Concomitant]
     Active Substance: RAMIPRIL
     Indication: Product used for unknown indication
     Route: 065
  112. WELLBUTRIN [Concomitant]
     Active Substance: BUPROPION HYDROCHLORIDE
     Indication: Product used for unknown indication
     Route: 065
  113. RITUXIMAB [Suspect]
     Active Substance: RITUXIMAB
  114. RITUXIMAB [Suspect]
     Active Substance: RITUXIMAB
  115. RITUXIMAB [Suspect]
     Active Substance: RITUXIMAB

REACTIONS (31)
  - Adrenal insufficiency [Not Recovered/Not Resolved]
  - Anti-cyclic citrullinated peptide antibody positive [Not Recovered/Not Resolved]
  - Drug hypersensitivity [Not Recovered/Not Resolved]
  - Drug tolerance [Not Recovered/Not Resolved]
  - Hypokalaemia [Not Recovered/Not Resolved]
  - Immunodeficiency [Not Recovered/Not Resolved]
  - Infection [Not Recovered/Not Resolved]
  - Joint destruction [Not Recovered/Not Resolved]
  - Loss of consciousness [Not Recovered/Not Resolved]
  - Polyarthritis [Not Recovered/Not Resolved]
  - Psoriasis [Not Recovered/Not Resolved]
  - Pulmonary fibrosis [Not Recovered/Not Resolved]
  - Rheumatoid factor positive [Not Recovered/Not Resolved]
  - Therapy non-responder [Not Recovered/Not Resolved]
  - Arthritis [Not Recovered/Not Resolved]
  - Blood pressure increased [Not Recovered/Not Resolved]
  - Foot deformity [Not Recovered/Not Resolved]
  - Gastroenteritis viral [Not Recovered/Not Resolved]
  - Hypocalcaemia [Not Recovered/Not Resolved]
  - Hypotension [Not Recovered/Not Resolved]
  - Mobility decreased [Not Recovered/Not Resolved]
  - Ill-defined disorder [Not Recovered/Not Resolved]
  - Limb discomfort [Not Recovered/Not Resolved]
  - Malaise [Not Recovered/Not Resolved]
  - Nodule [Not Recovered/Not Resolved]
  - Obesity [Not Recovered/Not Resolved]
  - Pleural effusion [Not Recovered/Not Resolved]
  - Pyrexia [Not Recovered/Not Resolved]
  - Red blood cell sedimentation rate abnormal [Not Recovered/Not Resolved]
  - Septic shock [Not Recovered/Not Resolved]
  - Therapeutic product effect decreased [Not Recovered/Not Resolved]
